FAERS Safety Report 6509204-5 (Version None)
Quarter: 2009Q4

REPORT INFORMATION
  Report Type: 
  Country: None (occurrence: None)
  Receive Date: 20091221
  Receipt Date: 20090818
  Transmission Date: 20100525
  Serious: No
  Sender: FDA-Public Use
  Company Number: US-TYCO HEALTHCARE/MALLINCKRODT-T200901562

PATIENT
  Sex: Male
  Weight: 102.4 kg

DRUGS (2)
  1. TECHNESCAN [Suspect]
     Indication: BONE SCAN
     Dosage: UNK
     Route: 042
     Dates: start: 20090814, end: 20090814
  2. ULTRA-TECHNEKOW [Suspect]
     Indication: BONE SCAN
     Dosage: 27.2 MCI, SINGLE
     Route: 042
     Dates: start: 20090814, end: 20090814

REACTIONS (2)
  - PRURITUS [None]
  - URTICARIA [None]
